FAERS Safety Report 6396257-0 (Version None)
Quarter: 2009Q4

REPORT INFORMATION
  Report Type: 
  Country: None (occurrence: None)
  Receive Date: 20091012
  Receipt Date: 20091002
  Transmission Date: 20100525
  Serious: Yes (Death, Hospitalization)
  Sender: FDA-Public Use
  Company Number: US-BIOGENIDEC-2005BI007223

PATIENT
  Sex: Female

DRUGS (7)
  1. COUMADIN [Concomitant]
  2. AVONEX [Suspect]
     Indication: MULTIPLE SCLEROSIS
     Route: 030
     Dates: start: 20030814, end: 20050301
  3. AVONEX [Suspect]
     Route: 030
     Dates: start: 20060701, end: 20060701
  4. AVONEX [Suspect]
     Route: 030
     Dates: start: 20020318, end: 20030714
  5. NEXIUM [Concomitant]
  6. MIRALAX [Concomitant]
  7. ZOMETA [Concomitant]

REACTIONS (2)
  - BREAST CANCER METASTATIC [None]
  - FATIGUE [None]
